FAERS Safety Report 6068304-7 (Version None)
Quarter: 2009Q1

REPORT INFORMATION
  Report Type: 
  Country: None (occurrence: None)
  Receive Date: 20090203
  Receipt Date: 20090122
  Transmission Date: 20090719
  Serious: Yes (Death, Life-Threatening, Other)
  Sender: FDA-Public Use
  Company Number: 2008-04552

PATIENT
  Age: 76 Year
  Sex: Female
  Weight: 70 kg

DRUGS (8)
  1. VELCADE [Suspect]
     Indication: MULTIPLE MYELOMA
     Dosage: 1.8 MG, INTRAVENOUS
     Route: 042
     Dates: start: 20081021
  2. DECADRON [Suspect]
     Indication: MULTIPLE MYELOMA
     Dosage: 20 MG, INTRAVENOUS
     Route: 042
     Dates: start: 20081028, end: 20081114
  3. LASIX [Suspect]
     Dosage: 40 MG, ORAL
     Route: 048
     Dates: start: 20080402, end: 20081119
  4. ETODOLAC [Concomitant]
  5. FENTANYL-100 [Concomitant]
  6. OXYCONTIN [Concomitant]
  7. MEROPEN (MEROPENEM) [Concomitant]
  8. MORPHINE [Concomitant]

REACTIONS (10)
  - ACUTE MYOCARDIAL INFARCTION [None]
  - ALTERED STATE OF CONSCIOUSNESS [None]
  - CEREBRAL INFARCTION [None]
  - HERPES ZOSTER [None]
  - HYPOKALAEMIA [None]
  - HYPONATRAEMIA [None]
  - PLATELET COUNT DECREASED [None]
  - RENAL FAILURE ACUTE [None]
  - RESPIRATORY ARREST [None]
  - SUDDEN DEATH [None]
